FAERS Safety Report 7035640-7 (Version None)
Quarter: 2010Q4

REPORT INFORMATION
  Report Type: 
  Country: None (occurrence: None)
  Receive Date: 20101008
  Receipt Date: 20101001
  Transmission Date: 20110411
  Serious: Yes (Hospitalization)
  Sender: FDA-Public Use
  Company Number: US-JNJFOC-20100606095

PATIENT
  Sex: Male
  Weight: 81.65 kg

DRUGS (17)
  1. RISPERDAL CONSTA [Suspect]
     Indication: PSYCHOTIC DISORDER
     Route: 030
  2. RISPERDAL CONSTA [Suspect]
     Route: 030
  3. RISPERDAL CONSTA [Suspect]
     Route: 030
  4. RISPERDAL CONSTA [Suspect]
     Indication: SCHIZOAFFECTIVE DISORDER
     Route: 030
  5. RISPERDAL CONSTA [Suspect]
     Route: 030
  6. RISPERDAL CONSTA [Suspect]
     Route: 030
  7. INVEGA SUSTENNA [Suspect]
     Indication: PSYCHOTIC DISORDER
     Dosage: 117-234 MG
     Route: 065
  8. INVEGA SUSTENNA [Suspect]
     Indication: SCHIZOAFFECTIVE DISORDER
     Dosage: 117-234 MG
     Route: 065
  9. COGENTIN [Concomitant]
     Indication: EXTRAPYRAMIDAL DISORDER
     Dosage: AT BEDTIME
     Route: 065
  10. RISPERDAL [Concomitant]
     Indication: PSYCHOTIC DISORDER
     Route: 048
  11. LITHIUM [Concomitant]
     Indication: AFFECTIVE DISORDER
     Route: 048
  12. METFORMIN [Concomitant]
     Indication: TYPE 2 DIABETES MELLITUS
     Route: 048
  13. LISINOPRIL [Concomitant]
     Indication: HYPERTENSION
     Route: 048
  14. VERAPAMIL [Concomitant]
     Indication: HYPERTENSION
  15. FLUPHENAZINE [Concomitant]
     Indication: PSYCHOTIC DISORDER
     Route: 065
  16. FLUPHENAZINE [Concomitant]
     Dosage: 2.0 TO 2.5 MG
     Route: 065
  17. TEMAZEPAM [Concomitant]
     Indication: INSOMNIA
     Dosage: AT BEDTIME
     Route: 065

REACTIONS (2)
  - HALLUCINATION, AUDITORY [None]
  - OVERDOSE [None]
